FAERS Safety Report 5446501-9 (Version None)
Quarter: 2007Q3

REPORT INFORMATION
  Report Type: 
  Country: None (occurrence: None)
  Receive Date: 20070907
  Receipt Date: 20070829
  Transmission Date: 20080115
  Serious: Yes (Death)
  Sender: FDA-Public Use
  Company Number: FR-JNJFOC-20070802915

PATIENT
  Age: 58 Year
  Sex: Male

DRUGS (8)
  1. SPORANOX [Suspect]
     Route: 048
  2. SPORANOX [Suspect]
     Indication: HISTOPLASMOSIS
     Route: 048
  3. SPORANOX [Suspect]
     Route: 042
  4. TEGRETOL [Interacting]
     Route: 065
  5. TEGRETOL [Interacting]
     Indication: CONVULSION
     Route: 065
  6. AMPHOTERICIN B [Concomitant]
     Route: 042
  7. METHLPREDNISOLONE [Concomitant]
     Route: 042
  8. SODIUM VALPORATE [Concomitant]
     Indication: CONVULSION PROPHYLAXIS
     Route: 065

REACTIONS (3)
  - CONDITION AGGRAVATED [None]
  - CONVULSION [None]
  - DRUG INTERACTION [None]
